FAERS Safety Report 18717451 (Version 1)
Quarter: 2021Q1

REPORT INFORMATION
  Report Type: Other
  Country: GB (occurrence: GB)
  Receive Date: 20210108
  Receipt Date: 20210108
  Transmission Date: 20210419
  Serious: Yes (Death, Other)
  Sender: FDA-Public Use
  Company Number: GB-ASPEN-GLO2020GB012485

PATIENT

DRUGS (1)
  1. DEXAMETHASONE. [Suspect]
     Active Substance: DEXAMETHASONE
     Indication: BRAIN NEOPLASM
     Route: 065
     Dates: start: 201807

REACTIONS (3)
  - Sepsis [Fatal]
  - Abdominal pain upper [Unknown]
  - Diverticulitis [Unknown]
